FAERS Safety Report 9035292 (Version 1)
Quarter: 2013Q1

REPORT INFORMATION
  Report Type: Report from Study
  Country: US (occurrence: US)
  Receive Date: 20130129
  Receipt Date: 20130129
  Transmission Date: 20140127
  Serious: No
  Sender: FDA-Public Use
  Company Number: US-ABBOTT-12P-163-0891998-00

PATIENT
  Age: 61 Year
  Sex: Male

DRUGS (3)
  1. HUMIRA 40 MG/0.8 ML PEN [Suspect]
     Indication: CROHN^S DISEASE
  2. LISINOPRIL [Concomitant]
     Indication: HYPERTENSION
  3. TRILIPIX [Concomitant]
     Indication: HYPERTENSION

REACTIONS (5)
  - Nasopharyngitis [Not Recovered/Not Resolved]
  - Sinusitis [Recovering/Resolving]
  - Tinnitus [Not Recovered/Not Resolved]
  - Ear infection [Unknown]
  - Dizziness [Unknown]
